FAERS Safety Report 7659218-7 (Version None)
Quarter: 2011Q3

REPORT INFORMATION
  Report Type: 
  Country: None (occurrence: None)
  Receive Date: 20110805
  Receipt Date: 20110803
  Transmission Date: 20111222
  Serious: Yes (Death, Hospitalization)
  Sender: FDA-Public Use
  Company Number: JP-B.I. PHARMACEUTICALS,INC./RIDGEFIELD-2011-BP-14828NB

PATIENT
  Sex: Male
  Weight: 60 kg

DRUGS (9)
  1. ASPIRIN [Concomitant]
     Indication: MYOCARDIAL INFARCTION
     Dosage: 100 MG
     Route: 065
     Dates: end: 20110608
  2. OMEPRAZOLE [Concomitant]
     Indication: GASTRITIS
     Dosage: 20 MG
     Route: 065
     Dates: end: 20110608
  3. DILTIAZEM HCL [Concomitant]
     Indication: ATRIAL FIBRILLATION
     Dosage: 100 MG
     Route: 065
  4. CRESTOR [Concomitant]
     Indication: HYPERLIPIDAEMIA
     Dosage: 5 MG
     Route: 065
     Dates: end: 20110608
  5. ALLOPURINOL [Concomitant]
     Indication: HYPERURICAEMIA
     Dosage: 200 MG
     Route: 065
     Dates: end: 20110608
  6. PRADAXA [Suspect]
     Indication: ATRIAL FIBRILLATION
     Dosage: 220 MG
     Route: 048
     Dates: start: 20110423, end: 20110604
  7. ENALAPRIL MALEATE [Concomitant]
     Indication: MYOCARDIAL INFARCTION
     Dosage: 2.5 MG
     Route: 065
     Dates: end: 20110620
  8. BISOPROLOL FUMARATE [Concomitant]
     Indication: ATRIAL FIBRILLATION
     Dosage: 5 MG
     Route: 065
  9. ALOSENN [Concomitant]
     Indication: CONSTIPATION
     Dosage: 0.5 G
     Route: 065
     Dates: end: 20110608

REACTIONS (1)
  - INTERSTITIAL LUNG DISEASE [None]
